FAERS Safety Report 21242443 (Version 2)
Quarter: 2022Q4

REPORT INFORMATION
  Report Type: Spontaneous
  Country: US (occurrence: US)
  Receive Date: 20220823
  Receipt Date: 20221206
  Transmission Date: 20230113
  Serious: No
  Sender: FDA-Public Use
  Company Number: US-NOVARTISTESTPH-NVSC2022US187201

PATIENT
  Sex: Male
  Weight: 93 kg

DRUGS (1)
  1. KYMRIAH [Suspect]
     Active Substance: TISAGENLECLEUCEL
     Indication: Acute lymphocytic leukaemia
     Dosage: UNK UNK, ONCE/SINGLE (2.0E8 CAR POSITIVE VISABLE T CELLS)
     Route: 042
     Dates: start: 20220715

REACTIONS (1)
  - Drug ineffective [Unknown]
